FAERS Safety Report 7498551-9 (Version None)
Quarter: 2011Q2

REPORT INFORMATION
  Report Type: 
  Country: None (occurrence: None)
  Receive Date: 20110516
  Receipt Date: 20110503
  Transmission Date: 20111010
  Serious: Yes (Other)
  Sender: FDA-Public Use
  Company Number: GER/UKI/11/0018168

PATIENT
  Age: 51 Year
  Sex: Female

DRUGS (4)
  1. CODEINE SULFATE [Suspect]
     Indication: MUSCULOSKELETAL PAIN
  2. PIZOTIFEN (PIZOTIFEN) [Suspect]
     Indication: MIGRAINE
  3. ACETAMINOPHEN [Suspect]
     Indication: MUSCULOSKELETAL PAIN
  4. SUMATRIPTAN (SUMATRIPTAN) [Suspect]
     Indication: MIGRAINE

REACTIONS (4)
  - HEADACHE [None]
  - CEREBRAL VASOCONSTRICTION [None]
  - BALINT'S SYNDROME [None]
  - CONDITION AGGRAVATED [None]
